FAERS Safety Report 10079435 (Version 1)
Quarter: 2014Q2

REPORT INFORMATION
  Report Type: Spontaneous
  Country: US (occurrence: US)
  Receive Date: 20140415
  Receipt Date: 20140415
  Transmission Date: 20141212
  Serious: Yes (Other)
  Sender: FDA-Public Use
  Company Number: US-BRISTOL-MYERS SQUIBB COMPANY-20598116

PATIENT
  Age: 53 Year
  Sex: Male

DRUGS (2)
  1. SUSTIVA [Suspect]
  2. REYATAZ [Suspect]

REACTIONS (1)
  - Renal transplant [Unknown]
